FAERS Safety Report 16013172 (Version 1)
Quarter: 2019Q1

REPORT INFORMATION
  Report Type: Spontaneous
  Country: US (occurrence: US)
  Receive Date: 20190131
  Receipt Date: 20190131
  Transmission Date: 20190418
  Serious: No
  Sender: FDA-Public Use
  Company Number: None

PATIENT
  Age: 56 Year
  Sex: Male

DRUGS (1)
  1. REPATHA [Suspect]
     Active Substance: EVOLOCUMAB
     Dates: start: 201802

REACTIONS (3)
  - Paraesthesia [None]
  - Upper-airway cough syndrome [None]
  - Burning sensation [None]

NARRATIVE: CASE EVENT DATE: 20180228
